FAERS Safety Report 9928457 (Version 2)
Quarter: 2014Q1

REPORT INFORMATION
  Report Type: Spontaneous
  Country: GB (occurrence: GB)
  Receive Date: 20140227
  Receipt Date: 20140227
  Transmission Date: 20141002
  Serious: Yes (Other)
  Sender: FDA-Public Use
  Company Number: GB-ASTELLAS-2014EU000326

PATIENT
  Age: 62 Year
  Sex: Female
  Weight: 62 kg

DRUGS (7)
  1. BETMIGA [Suspect]
     Indication: INCONTINENCE
     Dosage: 50 MG, UID/QD
     Route: 048
     Dates: start: 20131217, end: 20131219
  2. WARFARIN [Concomitant]
     Dosage: UNK
     Route: 065
  3. AMLODIPINE [Concomitant]
     Dosage: UNK
     Route: 065
  4. VITAMIN B-12 [Concomitant]
     Dosage: UNK
     Route: 065
  5. CEFALEXIN [Concomitant]
     Dosage: UNK
     Route: 065
  6. NITROFURANTOIN [Concomitant]
     Dosage: UNK
     Route: 065
  7. TRIMETHOPRIM [Concomitant]
     Dosage: UNK
     Route: 065

REACTIONS (3)
  - Off label use [Unknown]
  - Balance disorder [Unknown]
  - Muscular weakness [Recovered/Resolved]
